FAERS Safety Report 25445132 (Version 1)
Quarter: 2025Q2

REPORT INFORMATION
  Report Type: Spontaneous
  Country: US (occurrence: None)
  Receive Date: 20250616
  Receipt Date: 20250616
  Transmission Date: 20250717
  Serious: Yes (Death)
  Sender: FDA-CTU
  Company Number: None

PATIENT
  Age: 79 Year
  Sex: Female

DRUGS (10)
  1. NEORAL [Suspect]
     Active Substance: CYCLOSPORINE
     Indication: Prophylaxis against transplant rejection
     Dosage: FREQUENCY : DAILY;?
     Route: 048
     Dates: start: 20211209, end: 20250521
  2. MYCOPHENOLIC ACID [Suspect]
     Active Substance: MYCOPHENOLIC ACID
     Indication: Prophylaxis against transplant rejection
     Dosage: FREQUENCY : TWICE A DAY;?
     Route: 048
     Dates: start: 20221119, end: 20250521
  3. SENNA [Concomitant]
     Active Substance: SENNOSIDES
  4. OXYCODONE [Concomitant]
     Active Substance: OXYCODONE
  5. ISOSORBIDE DINITRATE [Concomitant]
     Active Substance: ISOSORBIDE DINITRATE
  6. GABAPENTIN [Concomitant]
     Active Substance: GABAPENTIN
  7. DICLOFENAC [Concomitant]
     Active Substance: DICLOFENAC
  8. ROSUVASTATIN [Concomitant]
     Active Substance: ROSUVASTATIN
  9. TELMISARTAN [Concomitant]
     Active Substance: TELMISARTAN
  10. TIZANIDINE [Concomitant]
     Active Substance: TIZANIDINE

REACTIONS (1)
  - Death [None]

NARRATIVE: CASE EVENT DATE: 20250521
